FAERS Safety Report 16158655 (Version 4)
Quarter: 2019Q3

REPORT INFORMATION
  Report Type: Report from Study
  Country: KR (occurrence: KR)
  Receive Date: 20190404
  Receipt Date: 20190710
  Transmission Date: 20191004
  Serious: Yes (Death)
  Sender: FDA-Public Use
  Company Number: KR-TAKEDA-2019TUS019476

PATIENT
  Sex: Male
  Weight: 68 kg

DRUGS (9)
  1. FENTADUR [Concomitant]
     Dosage: UNK
  2. FURIX [Concomitant]
     Dosage: 40 MILLIGRAM
  3. LYRICA [Concomitant]
     Active Substance: PREGABALIN
     Dosage: 150 MILLIGRAM
  4. CAROL-F [Concomitant]
     Dosage: UNK
  5. NUCYNTA [Concomitant]
     Active Substance: TAPENTADOL HYDROCHLORIDE
     Dosage: 50 MILLIGRAM
  6. BABY ASPIRIN [Concomitant]
     Active Substance: ASPIRIN
     Dosage: 100 MILLIGRAM
  7. ABSTRAL [Concomitant]
     Active Substance: FENTANYL CITRATE
     Dosage: 200 MICROGRAM
  8. BRIGATINIB [Suspect]
     Active Substance: BRIGATINIB
     Indication: NON-SMALL CELL LUNG CANCER
     Dosage: 90 MILLIGRAM, QD
     Route: 048
     Dates: start: 20190319, end: 201903
  9. DICODE [Concomitant]
     Dosage: 60 MILLIGRAM

REACTIONS (1)
  - Death [Fatal]
